FAERS Safety Report 9552494 (Version 1)
Quarter: 2013Q3

REPORT INFORMATION
  Report Type: Spontaneous
  Country: US (occurrence: None)
  Receive Date: 20130724
  Receipt Date: 20130724
  Transmission Date: 20140515
  Serious: Yes (Hospitalization, Other)
  Sender: FDA-Public Use
  Company Number: PHEH2013US000593

PATIENT
  Age: 82 Year
  Sex: Female

DRUGS (21)
  1. RECLAST (ZOLEDRONATE) SOLUTION FOR INJECTION [Suspect]
     Indication: OSTEOPOROSIS
     Route: 042
     Dates: start: 20121119
  2. LOSARTAN (LOSARTAN) [Concomitant]
  3. OMEPRAZOLE (OMEPRAZOLE) [Concomitant]
  4. FIORICET (BUTALBITAL, CAFFEINE, PARACETAMOL) [Concomitant]
  5. LASIX (FUROSEMIDE) [Concomitant]
  6. LEVOTHYROXIN (LEVOTHYROXINE SODIUM) [Concomitant]
  7. CARAFATE (SUCRALFATE) [Concomitant]
  8. CHOLESTYRAMINE (COLESTYRAMINE) [Concomitant]
  9. CALCIUM (CALCIUM) [Concomitant]
  10. MULTI-VIT (VITAMINS NOS) [Concomitant]
  11. GABAPENTIN (GABAPENTIN) [Concomitant]
  12. TOPAMAX (TOPIRAMATE) [Concomitant]
  13. CRESTOR (ROSUVASTATIN CALCIUM) [Concomitant]
  14. DIAZEPAM (DIAZEPAM) [Concomitant]
  15. MECLIZINE (MECLOZINE) [Concomitant]
  16. CETRIZEN (CETIRIZINE HYDROCHLORIDE) [Concomitant]
  17. SYMBICORTY (BUDESONIDE, FORMOTEROL FUMARATE) [Concomitant]
  18. AMLODIPINE (AMLODIPINE) [Concomitant]
  19. METOPROLOL (METOPROLOL) [Concomitant]
  20. NITROGLYCERIN (GLYCERYL TRINITRATE) [Concomitant]
  21. SINGULAIR [Concomitant]

REACTIONS (2)
  - Renal failure [None]
  - Arthralgia [None]
